FAERS Safety Report 7035198-2 (Version None)
Quarter: 2010Q4

REPORT INFORMATION
  Report Type: 
  Country: None (occurrence: None)
  Receive Date: 20101008
  Receipt Date: 20100929
  Transmission Date: 20110411
  Serious: Yes (Hospitalization, Other)
  Sender: FDA-Public Use
  Company Number: US-ROCHE-706907

PATIENT
  Sex: Male
  Weight: 79.4 kg

DRUGS (1)
  1. ACCUTANE [Suspect]
     Indication: ACNE
     Route: 065
     Dates: start: 19980519, end: 19981201

REACTIONS (8)
  - BILE DUCT CANCER [None]
  - CHOLANGITIS SCLEROSING [None]
  - COLITIS ULCERATIVE [None]
  - DRY EYE [None]
  - DRY SKIN [None]
  - INFLAMMATORY BOWEL DISEASE [None]
  - LIP DRY [None]
  - RASH [None]
